FAERS Safety Report 9501390 (Version 1)
Quarter: 2013Q1

REPORT INFORMATION
  Report Type: Spontaneous
  Country: US (occurrence: None)
  Receive Date: 20130122
  Receipt Date: 20130122
  Transmission Date: 20140127
  Serious: Yes (Other)
  Sender: FDA-Public Use
  Company Number: 2012090032

PATIENT
  Age: 76 Year
  Sex: Male
  Weight: 81.65 kg

DRUGS (1)
  1. MUSE [Suspect]
     Indication: ERECTILE DYSFUNCTION
     Route: 066
     Dates: start: 20120907

REACTIONS (1)
  - Erection increased [None]
